FAERS Safety Report 4967222-2 (Version None)
Quarter: 2006Q1

REPORT INFORMATION
  Report Type: 
  Country: None (occurrence: None)
  Receive Date: 20060328
  Receipt Date: 20060315
  Transmission Date: 20060701
  Serious: Yes (Other)
  Sender: FDA-Public Use
  Company Number: 2006BH005577

PATIENT
  Sex: Female

DRUGS (1)
  1. ARALAST [Suspect]
     Dates: end: 20060310

REACTIONS (4)
  - HEADACHE [None]
  - INFUSION RELATED REACTION [None]
  - VISION BLURRED [None]
  - VISUAL FIELD DEFECT [None]
